FAERS Safety Report 20844010 (Version 1)
Quarter: 2022Q2

REPORT INFORMATION
  Report Type: Spontaneous
  Country: US (occurrence: US)
  Receive Date: 20220518
  Receipt Date: 20220518
  Transmission Date: 20220720
  Serious: Yes (Death, Other)
  Sender: FDA-Public Use
  Company Number: US-Glenmark Generics, Inc. USA-GGEL20120700882

PATIENT
  Age: 26 Year
  Sex: Female

DRUGS (8)
  1. LAMOTRIGINE [Suspect]
     Active Substance: LAMOTRIGINE
     Indication: Seizure
     Dosage: 50 MILLIGRAM
     Route: 065
  2. THIORIDAZINE                       /00034202/ [Concomitant]
     Indication: Product used for unknown indication
     Route: 065
  3. VIGABATRIN [Concomitant]
     Active Substance: VIGABATRIN
     Indication: Product used for unknown indication
     Route: 065
  4. THYROXINE [Concomitant]
     Active Substance: LEVOTHYROXINE
     Indication: Product used for unknown indication
     Route: 065
  5. ACETAZOLAMIDE [Concomitant]
     Active Substance: ACETAZOLAMIDE
     Indication: Product used for unknown indication
     Route: 065
  6. HYDROCORTISONE [Concomitant]
     Active Substance: HYDROCORTISONE
     Indication: Product used for unknown indication
     Route: 065
  7. CARBAMAZEPINE [Concomitant]
     Active Substance: CARBAMAZEPINE
     Indication: Product used for unknown indication
     Route: 065
  8. MIDAZOLAM [Concomitant]
     Active Substance: MIDAZOLAM
     Indication: Product used for unknown indication
     Dosage: UNK
     Route: 065

REACTIONS (13)
  - Renal failure [Fatal]
  - Condition aggravated [Fatal]
  - Disseminated intravascular coagulation [Fatal]
  - Circulatory collapse [Unknown]
  - Oropharyngeal pain [Unknown]
  - Leukocytosis [Unknown]
  - Blood creatine phosphokinase increased [Unknown]
  - Influenza like illness [Unknown]
  - Pyrexia [Unknown]
  - Somnolence [Unknown]
  - Anaemia [Unknown]
  - Confusional state [Unknown]
  - Headache [Unknown]
